FAERS Safety Report 17076108 (Version 3)
Quarter: 2023Q2

REPORT INFORMATION
  Report Type: Report from Study
  Country: FR (occurrence: FR)
  Receive Date: 20191126
  Receipt Date: 20230412
  Transmission Date: 20230721
  Serious: Yes (Death, Life-Threatening, Other)
  Sender: FDA-Public Use
  Company Number: FR-PFIZER INC-2019505436

PATIENT
  Age: 62 Year

DRUGS (3)
  1. CARBOPLATIN [Suspect]
     Active Substance: CARBOPLATIN
     Indication: Pharyngeal cancer metastatic
     Dosage: UNK, CYCLIC
     Route: 042
  2. FLUOROURACIL [Suspect]
     Active Substance: FLUOROURACIL
     Indication: Pharyngeal cancer metastatic
     Dosage: UNK, CYCLIC
     Route: 042
  3. CETUXIMAB [Suspect]
     Active Substance: CETUXIMAB
     Indication: Pharyngeal cancer metastatic
     Dosage: UNK, CYCLIC
     Route: 042

REACTIONS (1)
  - Febrile neutropenia [Fatal]
